FAERS Safety Report 7960335-2 (Version None)
Quarter: 2011Q4

REPORT INFORMATION
  Report Type: 
  Country: None (occurrence: None)
  Receive Date: 20111206
  Receipt Date: 20111206
  Transmission Date: 20120403
  Serious: Yes (Death, Life-Threatening, Hospitalization)
  Sender: FDA-Public Use
  Company Number: PHHO2011NZ04990

PATIENT
  Sex: Male

DRUGS (2)
  1. AFINITOR [Suspect]
     Indication: METASTATIC GASTRIC CANCER
     Dosage: 10 MG, QD
     Route: 048
     Dates: start: 20101111, end: 20110313
  2. MORPHINE SULFATE [Concomitant]
     Indication: PAIN PROPHYLAXIS

REACTIONS (5)
  - ABDOMINAL ADHESIONS [None]
  - CONSTIPATION [None]
  - ABDOMINAL PAIN [None]
  - DRUG INEFFECTIVE [None]
  - DUODENAL PERFORATION [None]
